FAERS Safety Report 9413690 (Version 1)
Quarter: 2013Q3

REPORT INFORMATION
  Report Type: Spontaneous
  Country: US (occurrence: US)
  Receive Date: 20130722
  Receipt Date: 20130722
  Transmission Date: 20140515
  Serious: Yes (Hospitalization)
  Sender: FDA-Public Use
  Company Number: US-BAXTER-2013BAX026921

PATIENT
  Sex: Male

DRUGS (1)
  1. DIANEAL LOW CALCIUM [Suspect]
     Indication: PERITONEAL DIALYSIS
     Dosage: 12.5 TO 13 LITERS
     Route: 033

REACTIONS (3)
  - Diabetic ketoacidosis [Unknown]
  - Underdose [Recovered/Resolved]
  - Peritoneal dialysis complication [Recovered/Resolved]
